FAERS Safety Report 10923789 (Version 1)
Quarter: 2015Q1

REPORT INFORMATION
  Report Type: Spontaneous
  Country: US (occurrence: US)
  Receive Date: 20150318
  Receipt Date: 20150318
  Transmission Date: 20150721
  Serious: Yes (Death, Hospitalization, Other)
  Sender: FDA-Public Use
  Company Number: US-DENDREON CORPORATION-2012PROUSA02546

PATIENT
  Age: 77 Year
  Sex: Male

DRUGS (3)
  1. PROVENGE [Suspect]
     Active Substance: SIPULEUCEL-T
     Indication: PROSTATE CANCER METASTATIC
     Dosage: 250 MG, SINGLE
     Route: 042
     Dates: start: 20120504, end: 20120504
  2. PROVENGE [Suspect]
     Active Substance: SIPULEUCEL-T
     Dosage: 250 MG, SINGLE
     Route: 042
     Dates: start: 20120601, end: 20120601
  3. PROVENGE [Suspect]
     Active Substance: SIPULEUCEL-T
     Dosage: 250 MG, SINGLE
     Route: 042
     Dates: start: 20120702, end: 20120702

REACTIONS (4)
  - Death [Fatal]
  - Medical device complication [Unknown]
  - Disease progression [Unknown]
  - Device related infection [Unknown]

NARRATIVE: CASE EVENT DATE: 2012
